FAERS Safety Report 25915193 (Version 4)
Quarter: 2025Q4

REPORT INFORMATION
  Report Type: Report from Study
  Country: US (occurrence: US)
  Receive Date: 20251013
  Receipt Date: 20251125
  Transmission Date: 20260118
  Serious: No
  Sender: MALLINCKRODT
  Company Number: US-MALLINCKRODT-MNK202506139

PATIENT
  Age: 65 Year
  Sex: Female

DRUGS (4)
  1. CORTICOTROPIN [Suspect]
     Active Substance: CORTICOTROPIN
     Indication: Uveitis
     Dosage: 80 UNITS
     Route: 058
     Dates: start: 202509, end: 2025
  2. CORTICOTROPIN [Suspect]
     Active Substance: CORTICOTROPIN
     Dosage: 80 UNITS
     Route: 058
     Dates: start: 2025, end: 2025
  3. ORENCIA [Concomitant]
     Active Substance: ABATACEPT
     Dosage: UNKNOWN
  4. ORENCIA [Concomitant]
     Active Substance: ABATACEPT
     Dosage: UNKNOWN

REACTIONS (3)
  - Hair texture abnormal [Not Recovered/Not Resolved]
  - Increased appetite [Recovering/Resolving]
  - Weight increased [Not Recovered/Not Resolved]

NARRATIVE: CASE EVENT DATE: 20250101
